FAERS Safety Report 23771888 (Version 1)
Quarter: 2024Q2

REPORT INFORMATION
  Report Type: Spontaneous
  Country: US (occurrence: US)
  Receive Date: 20240423
  Receipt Date: 20240423
  Transmission Date: 20240717
  Serious: No
  Sender: FDA-Public Use
  Company Number: SCLX2400013

PATIENT
  Sex: Female

DRUGS (1)
  1. ZTLIDO [Suspect]
     Active Substance: LIDOCAINE
     Indication: Product used for unknown indication
     Dosage: SINGLE DOSE
     Route: 061

REACTIONS (1)
  - Product dose omission issue [Unknown]
